FAERS Safety Report 24579519 (Version 1)
Quarter: 2024Q4

REPORT INFORMATION
  Report Type: Spontaneous
  Country: GB (occurrence: GB)
  Receive Date: 20241105
  Receipt Date: 20241105
  Transmission Date: 20250114
  Serious: Yes (Hospitalization)
  Sender: MYLAN
  Company Number: GB-MYLANLABS-2024M1098658

PATIENT
  Sex: Male

DRUGS (2)
  1. CLOZARIL [Suspect]
     Active Substance: CLOZAPINE
     Indication: Schizophrenia
     Dosage: (LAST DOSE (225 MILLIGRAM) ON SUNDAY MORNING)
     Route: 048
     Dates: start: 20111003, end: 20241027
  2. CLOZARIL [Suspect]
     Active Substance: CLOZAPINE
     Dosage: AM (DAILY DOSE TODAY IN THE MORNING WITHOUT RE-TITRATION)
     Route: 048
     Dates: start: 20241030

REACTIONS (2)
  - Foreign body ingestion [Unknown]
  - Product dose omission issue [Recovered/Resolved]

NARRATIVE: CASE EVENT DATE: 20241027
